FAERS Safety Report 6147931-2 (Version None)
Quarter: 2009Q2

REPORT INFORMATION
  Report Type: 
  Country: None (occurrence: None)
  Receive Date: 20090408
  Receipt Date: 20090402
  Transmission Date: 20091009
  Serious: Yes (Other)
  Sender: FDA-Public Use
  Company Number: PHEH2009US01724

PATIENT
  Sex: Female
  Weight: 66.667 kg

DRUGS (1)
  1. RECLAST [Suspect]
     Indication: OSTEOPOROSIS
     Dosage: UNK, YEARLY
     Dates: start: 20080501

REACTIONS (2)
  - ORAL SURGERY [None]
  - TOOTH EXTRACTION [None]
